FAERS Safety Report 18905241 (Version 2)
Quarter: 2021Q1

REPORT INFORMATION
  Report Type: Spontaneous
  Country: US (occurrence: US)
  Receive Date: 20210217
  Receipt Date: 20210226
  Transmission Date: 20210420
  Serious: Yes (Other)
  Sender: FDA-Public Use
  Company Number: US-BAYER-2021-062141

PATIENT
  Sex: Male

DRUGS (2)
  1. ALEVE BACK AND MUSCLE PAIN [Suspect]
     Active Substance: NAPROXEN SODIUM
     Indication: HEADACHE
     Dosage: 2 UNK
  2. ALEVE BACK AND MUSCLE PAIN [Suspect]
     Active Substance: NAPROXEN SODIUM
     Indication: HEADACHE
     Dosage: 2 DF

REACTIONS (6)
  - Penis disorder [Unknown]
  - Penile blister [Unknown]
  - Pruritus genital [Unknown]
  - Nephrolithiasis [None]
  - Fear [Unknown]
  - Blister [Unknown]
